FAERS Safety Report 4332594-9 (Version None)
Quarter: 2004Q1

REPORT INFORMATION
  Report Type: 
  Country: None (occurrence: None)
  Receive Date: 20040330
  Receipt Date: 20040315
  Transmission Date: 20041129
  Serious: Yes (Hospitalization)
  Sender: FDA-Public Use
  Company Number: FR-JNJFOC-20040303092

PATIENT
  Age: 24 Year
  Sex: Male

DRUGS (1)
  1. HALDOL [Suspect]
     Indication: DRUG USE FOR UNKNOWN INDICATION
     Dosage: ORAL
     Route: 048
     Dates: start: 20031201, end: 20031202

REACTIONS (4)
  - DYSTONIA [None]
  - MEDICATION ERROR [None]
  - SPEECH DISORDER [None]
  - TORTICOLLIS [None]
